FAERS Safety Report 15888800 (Version 3)
Quarter: 2019Q1

REPORT INFORMATION
  Report Type: Spontaneous
  Country: RO (occurrence: RO)
  Receive Date: 20190130
  Receipt Date: 20190226
  Transmission Date: 20190417
  Serious: Yes (Hospitalization)
  Sender: FDA-Public Use
  Company Number: RO-SA-2019SA019594

PATIENT
  Age: 20 Year
  Sex: Female

DRUGS (2)
  1. LANTUS [Suspect]
     Active Substance: INSULIN GLARGINE
     Indication: TYPE 1 DIABETES MELLITUS
     Dosage: UNK UNK, UNK
     Route: 065
  2. FIASP [Concomitant]
     Active Substance: INSULIN ASPART
     Dosage: 3 IU (AT 7 A.M), 7 IU (AT 13 P.M), 6 IU (AT 7 P.M) AND 2 IU (AT 10 P.M)

REACTIONS (4)
  - Ketosis [Recovered/Resolved]
  - Glycosylated haemoglobin increased [Recovered/Resolved]
  - Tooth abscess [Recovering/Resolving]
  - Blood glucose increased [Recovered/Resolved]

NARRATIVE: CASE EVENT DATE: 200805
